FAERS Safety Report 5173146-0 (Version None)
Quarter: 2006Q4

REPORT INFORMATION
  Report Type: 
  Country: None (occurrence: None)
  Receive Date: 20061207
  Receipt Date: 20061207
  Transmission Date: 20070319
  Serious: No
  Sender: FDA-Public Use
  Company Number: None

PATIENT
  Age: 40 Year
  Sex: Female
  Weight: 65.7716 kg

DRUGS (3)
  1. EQUATE EX. STRENGTH PAIN RELIEVER 500 MG ACETAMINOPHEN PERRIGO, WALMAR [Suspect]
     Indication: HEADACHE
     Dosage: 2 CAPLETS EVERY 6 HOURS PO
     Route: 048
     Dates: start: 20061112, end: 20061112
  2. EQUATE EX. STRENGTH PAIN RELIEVER 500 MG ACETAMINOPHEN PERRIGO, WALMAR [Suspect]
     Indication: HEADACHE
     Dosage: 2 CAPLETS EVERY 6 HOURS PO
     Route: 048
     Dates: start: 20061205, end: 20061205
  3. EQUATE EX. STRENGTH PAIN RELIEVER 500 MG ACETAMINOPHEN PERRIGO, WALMAR [Suspect]

REACTIONS (4)
  - DIARRHOEA [None]
  - IMPAIRED WORK ABILITY [None]
  - NAUSEA [None]
  - VOMITING [None]
